FAERS Safety Report 7984298-9 (Version None)
Quarter: 2011Q4

REPORT INFORMATION
  Report Type: 
  Country: None (occurrence: None)
  Receive Date: 20111216
  Receipt Date: 20110502
  Transmission Date: 20120403
  Serious: Yes (Hospitalization)
  Sender: FDA-Public Use
  Company Number: US-GENZYME-LEUK-1000109

PATIENT

DRUGS (5)
  1. OXYCODONE HYDROCHLORIDE [Concomitant]
     Indication: PRODUCT USED FOR UNKNOWN INDICATION
     Dosage: UNK
     Route: 065
  2. LEUKINE [Suspect]
     Indication: MALIGNANT MELANOMA
     Dosage: 250 MCG/KG, DAYS 1-14
     Route: 058
     Dates: start: 20110218, end: 20110414
  3. CELEBREX [Concomitant]
     Indication: PRODUCT USED FOR UNKNOWN INDICATION
     Dosage: UNK
     Route: 065
  4. ANTINEOPLASTIC AGENTS [Suspect]
     Indication: MALIGNANT MELANOMA
     Dosage: 10 MG/KG, DAY 1
     Route: 042
     Dates: start: 20110218, end: 20110218
  5. ANTINEOPLASTIC AGENTS [Suspect]
     Dosage: 10 MG/KG, DAY 1
     Route: 042
     Dates: start: 20110401, end: 20110401

REACTIONS (4)
  - ARTHRITIS [None]
  - HYPOALBUMINAEMIA [None]
  - DRY SKIN [None]
  - MUSCULAR WEAKNESS [None]
